FAERS Safety Report 12867624 (Version 1)
Quarter: 2016Q4

REPORT INFORMATION
  Report Type: Spontaneous
  Country: FR (occurrence: FR)
  Receive Date: 20161020
  Receipt Date: 20161020
  Transmission Date: 20170207
  Serious: Yes (Hospitalization, Other)
  Sender: FDA-Public Use
  Company Number: FR-ASTRAZENECA-2016SF06871

PATIENT
  Age: 17364 Day
  Sex: Male

DRUGS (9)
  1. TIENAM [Suspect]
     Active Substance: CILASTATIN SODIUM\IMIPENEM
     Indication: LUNG ABSCESS
     Route: 042
     Dates: start: 20160909, end: 20160914
  2. AMIKLIN [Concomitant]
     Active Substance: AMIKACIN SULFATE
     Route: 065
     Dates: start: 20160826
  3. INEXIUM [Suspect]
     Active Substance: ESOMEPRAZOLE
     Indication: PROPHYLAXIS AGAINST GASTROINTESTINAL ULCER
     Route: 042
     Dates: start: 20160830, end: 20160911
  4. ROCEPHINE [Concomitant]
     Active Substance: CEFTRIAXONE SODIUM
     Dosage: 1.0G UNKNOWN
     Route: 042
     Dates: start: 20160823
  5. ERYTHROMYCINE [Concomitant]
     Active Substance: ERYTHROMYCIN
     Route: 065
     Dates: start: 20160902, end: 20160903
  6. NEUPOGEN [Concomitant]
     Active Substance: FILGRASTIM
  7. TAZOCILLINE [Suspect]
     Active Substance: PIPERACILLIN SODIUM\TAZOBACTAM SODIUM
     Indication: BACTERIAL COLITIS
     Route: 042
     Dates: start: 20160826, end: 20160907
  8. TAVANIC [Concomitant]
     Active Substance: LEVOFLOXACIN
     Route: 065
     Dates: start: 20160823, end: 20160824
  9. VANCOMYCINE [Concomitant]
     Active Substance: VANCOMYCIN
     Route: 065
     Dates: start: 20160909

REACTIONS (3)
  - Sepsis [Unknown]
  - Agranulocytosis [Recovered/Resolved]
  - Lung abscess [Unknown]

NARRATIVE: CASE EVENT DATE: 20160909
